FAERS Safety Report 21693163 (Version 3)
Quarter: 2022Q4

REPORT INFORMATION
  Report Type: Spontaneous
  Country: CA (occurrence: CA)
  Receive Date: 20221207
  Receipt Date: 20221229
  Transmission Date: 20230113
  Serious: No
  Sender: FDA-Public Use
  Company Number: CA-PFIZER INC-202201343353

PATIENT
  Age: 63 Year
  Sex: Male

DRUGS (1)
  1. FRAGMIN [Suspect]
     Active Substance: DALTEPARIN SODIUM
     Dosage: 0.72 ML

REACTIONS (3)
  - Device difficult to use [Unknown]
  - Device issue [Unknown]
  - Injection site bruising [Unknown]
